FAERS Safety Report 6377648-0 (Version None)
Quarter: 2009Q3

REPORT INFORMATION
  Report Type: 
  Country: None (occurrence: None)
  Receive Date: 20090925
  Receipt Date: 20090911
  Transmission Date: 20100115
  Serious: Yes (Other)
  Sender: FDA-Public Use
  Company Number: CHNY2009JP03411

PATIENT
  Sex: Female

DRUGS (1)
  1. PURSENNID (NCH) [Suspect]
     Indication: CONSTIPATION
     Route: 048

REACTIONS (1)
  - ILEUS [None]
